FAERS Safety Report 10022621 (Version 1)
Quarter: 2014Q1

REPORT INFORMATION
  Report Type: Spontaneous
  Country: BR (occurrence: BR)
  Receive Date: 20140319
  Receipt Date: 20140319
  Transmission Date: 20141002
  Serious: Yes (Other)
  Sender: FDA-Public Use
  Company Number: PHHY2014BR031336

PATIENT
  Age: 3 Year
  Sex: Female
  Weight: 18.3 kg

DRUGS (1)
  1. AMOXICILLIN SODIUM+POTASSIUM CLAVULANATE SANDOZ [Suspect]
     Indication: PHARYNGITIS
     Dosage: 6 ML, Q12H
     Route: 048
     Dates: start: 20140310

REACTIONS (2)
  - Diarrhoea [Unknown]
  - Faeces discoloured [Unknown]
